FAERS Safety Report 17231304 (Version 1)
Quarter: 2020Q1

REPORT INFORMATION
  Report Type: Spontaneous
  Country: US (occurrence: US)
  Receive Date: 20200103
  Receipt Date: 20200103
  Transmission Date: 20200409
  Serious: No
  Sender: FDA-Public Use
  Company Number: US-PFIZER INC-2019560111

PATIENT
  Age: 67 Year
  Sex: Female

DRUGS (1)
  1. METHYLPREDNISOLONE. [Suspect]
     Active Substance: METHYLPREDNISOLONE

REACTIONS (4)
  - Diarrhoea [Unknown]
  - Rash [Unknown]
  - Abdominal discomfort [Unknown]
  - Drug hypersensitivity [Unknown]
